FAERS Safety Report 25133454 (Version 1)
Quarter: 2025Q1

REPORT INFORMATION
  Report Type: Spontaneous
  Country: US (occurrence: US)
  Receive Date: 20250328
  Receipt Date: 20250328
  Transmission Date: 20250408
  Serious: Yes (Other)
  Sender: NOVO NORDISK
  Company Number: US-NOVOPROD-1397304

PATIENT
  Sex: Female

DRUGS (1)
  1. OZEMPIC [Suspect]
     Active Substance: SEMAGLUTIDE
     Indication: Product used for unknown indication
     Dosage: 0.25MG, QW
     Dates: start: 202410

REACTIONS (4)
  - Pneumonia [Unknown]
  - Medical procedure [Unknown]
  - Product communication issue [Unknown]
  - Wrong technique in product usage process [Unknown]
